FAERS Safety Report 12600418 (Version 2)
Quarter: 2016Q3

REPORT INFORMATION
  Report Type: Spontaneous
  Country: US (occurrence: US)
  Receive Date: 20160727
  Receipt Date: 20160810
  Transmission Date: 20161109
  Serious: No
  Sender: FDA-Public Use
  Company Number: US-EISAI MEDICAL RESEARCH-EC-2016-018843

PATIENT
  Age: 7 Year
  Sex: Female
  Weight: 29.5 kg

DRUGS (15)
  1. BANZEL [Suspect]
     Active Substance: RUFINAMIDE
     Indication: SEIZURE
     Route: 048
     Dates: start: 20160610
  2. RITALN [Concomitant]
     Route: 048
  3. REMERON [Concomitant]
     Active Substance: MIRTAZAPINE
     Route: 048
  4. FLOVENT HFA [Concomitant]
     Active Substance: FLUTICASONE PROPIONATE
  5. KEFLEX [Concomitant]
     Active Substance: CEPHALEXIN
     Route: 048
  6. CLONIDINE. [Concomitant]
     Active Substance: CLONIDINE
     Route: 048
  7. ROBINUL [Concomitant]
     Active Substance: GLYCOPYRROLATE
     Route: 048
  8. L-CARNITINE [Concomitant]
     Active Substance: LEVOCARNITINE
     Route: 048
  9. ALBUTEROL HFA [Concomitant]
     Active Substance: ALBUTEROL SULFATE
  10. VITAMIN D3 [Concomitant]
     Active Substance: CHOLECALCIFEROL
     Route: 048
  11. SUPPRELIN [Concomitant]
     Active Substance: HISTRELIN ACETATE
     Route: 058
  12. ONFI [Concomitant]
     Active Substance: CLOBAZAM
     Indication: SEIZURE
     Route: 048
     Dates: start: 20120927
  13. CO-Q 10 [Concomitant]
     Route: 048
  14. ZONISAMIDE. [Concomitant]
     Active Substance: ZONISAMIDE
     Indication: SEIZURE
     Route: 048
     Dates: start: 20140627
  15. BACLOFEN. [Concomitant]
     Active Substance: BACLOFEN
     Indication: MUSCLE SPASTICITY
     Route: 048

REACTIONS (1)
  - Tachycardia [Recovering/Resolving]

NARRATIVE: CASE EVENT DATE: 20160711
